FAERS Safety Report 15715403 (Version 2)
Quarter: 2018Q4

REPORT INFORMATION
  Report Type: Report from Study
  Country: FR (occurrence: FR)
  Receive Date: 20181212
  Receipt Date: 20181219
  Transmission Date: 20190205
  Serious: Yes (Life-Threatening)
  Sender: FDA-Public Use
  Company Number: FR-PFIZER INC-2018509365

PATIENT
  Age: 63 Year
  Sex: Male
  Weight: 94 kg

DRUGS (9)
  1. CYTARABINE. [Suspect]
     Active Substance: CYTARABINE
     Indication: ACUTE MYELOID LEUKAEMIA
     Dosage: UNK
     Dates: start: 20181116
  2. TRAMADOL. [Concomitant]
     Active Substance: TRAMADOL
     Indication: ABDOMINAL PAIN
     Dosage: 200 MG, DAILY
     Route: 048
     Dates: start: 20181124
  3. CANCIDAS [Concomitant]
     Active Substance: CASPOFUNGIN ACETATE
     Indication: INFECTION
     Dosage: 70 MG, DAILY
     Route: 042
     Dates: start: 20181201, end: 20181205
  4. TEICOPLANIN [Concomitant]
     Active Substance: TEICOPLANIN
     Indication: INFECTION
     Dosage: 1 G, DAILY
     Route: 042
     Dates: start: 20181205
  5. TIENAM [Concomitant]
     Active Substance: CILASTATIN SODIUM\IMIPENEM
     Indication: INFECTION
     Dosage: 2 G, DAILY
     Route: 042
     Dates: start: 20181205
  6. GEMTUZUMAB OZOGAMICIN [Suspect]
     Active Substance: GEMTUZUMAB OZOGAMICIN
     Indication: ACUTE MYELOID LEUKAEMIA
     Dosage: UNK, D1
     Dates: start: 20181116, end: 20181116
  7. NEFOPAM [Concomitant]
     Active Substance: NEFOPAM
     Indication: PAIN
     Dosage: 20 MG, DAILY
     Route: 042
     Dates: start: 20181203
  8. DAPTOMYCINE [Concomitant]
     Active Substance: DAPTOMYCIN
     Indication: INFECTION
     Dosage: 900 MG, DAILY
     Route: 042
     Dates: start: 20181201, end: 20181205
  9. GEMTUZUMAB OZOGAMICIN [Suspect]
     Active Substance: GEMTUZUMAB OZOGAMICIN
     Dosage: UNK, D4
     Dates: start: 20181120

REACTIONS (3)
  - Pneumoperitoneum [Recovering/Resolving]
  - Colitis [Recovering/Resolving]
  - Sepsis [Recovering/Resolving]

NARRATIVE: CASE EVENT DATE: 20181205
